FAERS Safety Report 10747971 (Version 1)
Quarter: 2015Q1

REPORT INFORMATION
  Report Type: Spontaneous
  Country: US (occurrence: US)
  Receive Date: 20150129
  Receipt Date: 20150129
  Transmission Date: 20150721
  Serious: Yes (Other)
  Sender: FDA-Public Use
  Company Number: US-JNJFOC-20150116395

PATIENT
  Sex: Male
  Weight: 84.82 kg

DRUGS (1)
  1. REMICADE [Suspect]
     Active Substance: INFLIXIMAB
     Indication: CROHN^S DISEASE
     Dosage: STARTED 10 YEARS AGO
     Route: 042
     Dates: start: 2005

REACTIONS (1)
  - Eye degenerative disorder [Not Recovered/Not Resolved]
